FAERS Safety Report 8391955-1 (Version None)
Quarter: 2012Q2

REPORT INFORMATION
  Report Type: 
  Country: None (occurrence: None)
  Receive Date: 20120529
  Receipt Date: 20120525
  Transmission Date: 20120825
  Serious: Yes (Hospitalization)
  Sender: FDA-Public Use
  Company Number: FR-GLAXOSMITHKLINE-B0804000A

PATIENT
  Sex: Male

DRUGS (5)
  1. XANAX [Concomitant]
     Indication: DEPRESSION
     Route: 065
     Dates: start: 20110701
  2. INDAPAMIDE [Concomitant]
     Indication: HYPERTENSION
     Route: 065
  3. NICARDIPINE HYDROCHLORIDE [Concomitant]
     Indication: HYPERTENSION
     Route: 065
  4. PAROXETINE HYDROCHLORIDE [Suspect]
     Indication: DEPRESSION
     Dosage: 20MG PER DAY
     Route: 048
     Dates: start: 20110701, end: 20111026
  5. NEBIVOLOL [Concomitant]
     Indication: HYPERTENSION
     Route: 065

REACTIONS (4)
  - HALLUCINATION, VISUAL [None]
  - EXTRAPYRAMIDAL DISORDER [None]
  - MUSCULAR WEAKNESS [None]
  - BALANCE DISORDER [None]
